FAERS Safety Report 19754730 (Version 1)
Quarter: 2021Q3

REPORT INFORMATION
  Report Type: Spontaneous
  Country: US (occurrence: US)
  Receive Date: 20210824
  Receipt Date: 20210824
  Transmission Date: 20211014
  Serious: Yes (Hospitalization)
  Sender: FDA-Public Use
  Company Number: None

PATIENT
  Age: 8 Year
  Sex: Male

DRUGS (9)
  1. LANSOPRAZOLE. [Concomitant]
     Active Substance: LANSOPRAZOLE
  2. MIRALAX POW [Concomitant]
  3. ORKAMBI [Concomitant]
     Active Substance: IVACAFTOR\LUMACAFTOR
  4. PULMOZYME SOL [Concomitant]
  5. AQUADEKS [Concomitant]
     Active Substance: MINERALS\VITAMINS
  6. ZENPEP [Suspect]
     Active Substance: PANCRELIPASE AMYLASE\PANCRELIPASE LIPASE\PANCRELIPASE PROTEASE
     Indication: COUGH
     Dosage: 20000?63000 UNIT; 4 CAPSULES PO 3 TIMES DAILY (WITH MEALS), 2  WITH SNACKS. MAX DAILY 16 CAPSULES.?
     Route: 048
     Dates: start: 20201230
  7. IBUPROFEN TAB [Concomitant]
  8. XOPENEX HFA AER [Concomitant]
  9. TRIKAFTA [Concomitant]
     Active Substance: ELEXACAFTOR\IVACAFTOR\TEZACAFTOR

REACTIONS (1)
  - Limb injury [None]

NARRATIVE: CASE EVENT DATE: 20210804
